FAERS Safety Report 15326209 (Version 1)
Quarter: 2018Q3

REPORT INFORMATION
  Report Type: Spontaneous
  Country: US (occurrence: US)
  Receive Date: 20180828
  Receipt Date: 20180828
  Transmission Date: 20181010
  Serious: Yes (Hospitalization, Other)
  Sender: FDA-Public Use
  Company Number: US-009507513-1808USA008723

PATIENT
  Age: 62 Year
  Sex: Female

DRUGS (6)
  1. COMPAZINE [Concomitant]
     Active Substance: PROCHLORPERAZINE MALEATE
     Indication: PRODUCT USED FOR UNKNOWN INDICATION
     Dosage: 10 MG, Q6H
     Route: 048
     Dates: start: 20180228
  2. KEYTRUDA [Suspect]
     Active Substance: PEMBROLIZUMAB
     Indication: PRODUCT USED FOR UNKNOWN INDICATION
     Dosage: UNK
     Route: 065
  3. KEPPRA [Concomitant]
     Active Substance: LEVETIRACETAM
     Indication: PRODUCT USED FOR UNKNOWN INDICATION
     Dosage: 500 MG, BID
     Route: 048
     Dates: start: 20180305
  4. AZACITIDINE. [Suspect]
     Active Substance: AZACITIDINE
     Indication: PRODUCT USED FOR UNKNOWN INDICATION
     Route: 065
  5. IPILIMUMAB [Suspect]
     Active Substance: IPILIMUMAB
     Indication: METASTATIC MALIGNANT MELANOMA
     Dosage: UNK
     Route: 065
     Dates: start: 20180328, end: 20180328
  6. ZOFRAN [Concomitant]
     Active Substance: ONDANSETRON HYDROCHLORIDE
     Indication: PRODUCT USED FOR UNKNOWN INDICATION
     Dosage: 8 MG, UNK
     Route: 048
     Dates: start: 20180105

REACTIONS (31)
  - Pulmonary embolism [Unknown]
  - Confusional state [Recovered/Resolved]
  - Rash [Unknown]
  - Troponin increased [Unknown]
  - Pneumonia [Unknown]
  - Acute kidney injury [Unknown]
  - Autoimmune nephritis [Recovering/Resolving]
  - Malignant neoplasm progression [Unknown]
  - Visual impairment [Unknown]
  - Herpes simplex [Unknown]
  - Alopecia [Unknown]
  - Amnesia [Unknown]
  - Asthenia [Recovering/Resolving]
  - Blood lactate dehydrogenase increased [Unknown]
  - Leukocytosis [Unknown]
  - Malignant ascites [Unknown]
  - Anaemia [Unknown]
  - Blood creatinine increased [Unknown]
  - Candida infection [Unknown]
  - Malnutrition [Unknown]
  - Back pain [Recovering/Resolving]
  - Thrombosis [Unknown]
  - Nausea [Recovering/Resolving]
  - Renal tubular necrosis [Unknown]
  - Localised oedema [Unknown]
  - Meniere^s disease [Unknown]
  - Intracranial tumour haemorrhage [Unknown]
  - Blood creatinine increased [Unknown]
  - Decreased appetite [Recovering/Resolving]
  - Dyspnoea [Recovered/Resolved]
  - Pneumonitis [Unknown]

NARRATIVE: CASE EVENT DATE: 201805
